FAERS Safety Report 9180966 (Version 1)
Quarter: 2013Q1

REPORT INFORMATION
  Report Type: Spontaneous
  Country: JP (occurrence: None)
  Receive Date: 20130320
  Receipt Date: 20130320
  Transmission Date: 20140127
  Serious: Yes (Hospitalization)
  Sender: FDA-Public Use
  Company Number: IBUP20130004

PATIENT
  Age: 19 Year
  Sex: Female

DRUGS (2)
  1. IBUPROFEN [Suspect]
     Indication: NASOPHARYNGITIS
     Route: 048
     Dates: start: 200802
  2. Q-PAP TABLETS 325MG (PARACETAMOL) (TABLETS) [Suspect]
     Indication: NASOPHARYNGITIS
     Route: 048
     Dates: start: 200802

REACTIONS (8)
  - Vanishing bile duct syndrome [None]
  - Toxic epidermal necrolysis [None]
  - Liver injury [None]
  - Pneumonia bacterial [None]
  - Hepatic function abnormal [None]
  - Jaundice [None]
  - Blood bilirubin increased [None]
  - Alanine aminotransferase increased [None]
